FAERS Safety Report 4667833-8 (Version None)
Quarter: 2005Q2

REPORT INFORMATION
  Report Type: 
  Country: None (occurrence: None)
  Receive Date: 20050520
  Receipt Date: 20050511
  Transmission Date: 20051028
  Serious: Yes (Other)
  Sender: FDA-Public Use
  Company Number: FR-BRISTOL-MYERS SQUIBB COMPANY-12963385

PATIENT
  Age: 68 Year
  Sex: Male

DRUGS (2)
  1. PRAVASTATIN [Suspect]
     Indication: HYPERCHOLESTEROLAEMIA
     Route: 048
     Dates: start: 19980901, end: 20041101
  2. ASPIRIN [Concomitant]
     Route: 048

REACTIONS (1)
  - TENDON RUPTURE [None]
